FAERS Safety Report 15790116 (Version 4)
Quarter: 2022Q1

REPORT INFORMATION
  Report Type: Spontaneous
  Country: CA (occurrence: CA)
  Receive Date: 20190104
  Receipt Date: 20220121
  Transmission Date: 20220423
  Serious: Yes (Other)
  Sender: FDA-Public Use
  Company Number: CA-PFIZER INC-2019002090

PATIENT
  Age: 32 Year
  Sex: Female

DRUGS (23)
  1. DIAZEPAM [Suspect]
     Active Substance: DIAZEPAM
     Dosage: 100 MG, EVERY 1 HOUR
     Route: 042
  2. DIAZEPAM [Suspect]
     Active Substance: DIAZEPAM
     Dosage: 100 MG
     Route: 042
  3. DIAZEPAM [Suspect]
     Active Substance: DIAZEPAM
     Dosage: 100 MG, EVERY 1 HOURS
     Route: 040
  4. LORAZEPAM [Suspect]
     Active Substance: LORAZEPAM
     Dosage: UNK
     Route: 040
  5. PHENOBARBITAL [Suspect]
     Active Substance: PHENOBARBITAL
     Dosage: 160 MG, EVERY 4 HRS
  6. PHENOBARBITAL [Suspect]
     Active Substance: PHENOBARBITAL
     Dosage: 40 MG, 1 EVERY 1 HOUR
  7. PHENOBARBITAL [Suspect]
     Active Substance: PHENOBARBITAL
     Dosage: UNK
  8. PHENYTOIN SODIUM [Suspect]
     Active Substance: PHENYTOIN SODIUM
     Dosage: 500 MG, 1X/DAY
  9. PHENYTOIN SODIUM [Suspect]
     Active Substance: PHENYTOIN SODIUM
     Dosage: 500 MG, 1X/DAY
  10. PHENYTOIN [Suspect]
     Active Substance: PHENYTOIN
     Dosage: 500 MG, 1X/DAY
  11. FORANE [Suspect]
     Active Substance: ISOFLURANE
     Dosage: UNK
  12. LIDOCAINE [Suspect]
     Active Substance: LIDOCAINE
     Dosage: 4 MG, UNK
     Route: 061
  13. PARALDEHYDE [Suspect]
     Active Substance: PARALDEHYDE
     Dosage: 500 ML, UNK
  14. PARALDEHYDE [Suspect]
     Active Substance: PARALDEHYDE
     Dosage: 500 UL
  15. VALPROIC ACID [Suspect]
     Active Substance: VALPROIC ACID
     Dosage: 500 MG, 4X/DAY (1 EVERY 6 HOURS)
  16. LORAZEPAM [Suspect]
     Active Substance: LORAZEPAM
     Dosage: UNK
     Route: 040
  17. LORAZEPAM [Suspect]
     Active Substance: LORAZEPAM
     Dosage: UNK
     Route: 042
  18. VALPROIC ACID [Suspect]
     Active Substance: VALPROIC ACID
     Dosage: 500 MG
     Route: 048
  19. VALPROIC ACID [Suspect]
     Active Substance: VALPROIC ACID
     Dosage: 500 MG, 3X/DAY
  20. VALPROIC ACID [Suspect]
     Active Substance: VALPROIC ACID
     Dosage: 500 MG, 4X/DAY
  21. ISOFLURANE [Suspect]
     Active Substance: ISOFLURANE
     Dosage: UNK
  22. ISOFLURANE [Suspect]
     Active Substance: ISOFLURANE
     Dosage: 1 UNK
     Route: 040
  23. DOPAMINE HYDROCHLORIDE [Concomitant]
     Active Substance: DOPAMINE HYDROCHLORIDE
     Dosage: UNK

REACTIONS (3)
  - Drug ineffective [Not Recovered/Not Resolved]
  - Hypotension [Not Recovered/Not Resolved]
  - Status epilepticus [Not Recovered/Not Resolved]
